FAERS Safety Report 9135216 (Version 1)
Quarter: 2013Q1

REPORT INFORMATION
  Report Type: Spontaneous
  Country: US (occurrence: US)
  Receive Date: 20130304
  Receipt Date: 20130304
  Transmission Date: 20140127
  Serious: Yes (Hospitalization, Other)
  Sender: FDA-Public Use
  Company Number: US-ENDO PHARMACEUTICALS INC.-PERC20120151

PATIENT
  Age: 46 Year
  Sex: Female

DRUGS (2)
  1. PERCOCET 10MG/325MG [Suspect]
     Indication: PRODUCT USED FOR UNKNOWN INDICATION
     Dosage: 10/325 MG
     Route: 048
     Dates: start: 201211, end: 201211
  2. BUTRANS [Suspect]
     Indication: PRODUCT USED FOR UNKNOWN INDICATION
     Dosage: 20 MCG/HOUR

REACTIONS (4)
  - Lethargy [Recovered/Resolved]
  - Depressed level of consciousness [Recovered/Resolved]
  - Drug diversion [Recovered/Resolved]
  - Overdose [Recovered/Resolved]
